FAERS Safety Report 7465919-6 (Version None)
Quarter: 2011Q2

REPORT INFORMATION
  Report Type: 
  Country: None (occurrence: None)
  Receive Date: 20110509
  Receipt Date: 20100506
  Transmission Date: 20111010
  Serious: No
  Sender: FDA-Public Use
  Company Number: US-ALEXION-A201000531

PATIENT
  Sex: Female

DRUGS (6)
  1. SOLIRIS [Suspect]
     Dosage: 900 MG, UNK
     Route: 042
  2. FOLIC ACID [Concomitant]
     Dosage: UNK
     Route: 048
  3. VITAMIN A [Concomitant]
     Dosage: UNK
     Route: 048
  4. VITAMIN B12                        /00056201/ [Concomitant]
     Dosage: UNK
     Route: 048
  5. PROCRIT                            /00909301/ [Concomitant]
     Dosage: UNK
     Route: 051
  6. SOLIRIS [Suspect]
     Indication: PAROXYSMAL NOCTURNAL HAEMOGLOBINURIA
     Dosage: 600 MG, UNK
     Route: 042
     Dates: start: 20060101

REACTIONS (1)
  - FATIGUE [None]
